FAERS Safety Report 10108855 (Version 1)
Quarter: 2014Q2

REPORT INFORMATION
  Report Type: Spontaneous
  Country: GB (occurrence: GB)
  Receive Date: 20140425
  Receipt Date: 20140425
  Transmission Date: 20141212
  Serious: Yes (Other)
  Sender: FDA-Public Use
  Company Number: GB-UCBSA-118728

PATIENT
  Age: 61 Year
  Sex: Male

DRUGS (3)
  1. NEUPRO [Suspect]
     Indication: RESTLESS LEGS SYNDROME
     Dosage: 3 MG PATCH
     Route: 062
  2. NEUPRO [Suspect]
     Indication: RESTLESS LEGS SYNDROME
     Dosage: 2 MG PATCH
     Route: 062
  3. NEUPRO [Suspect]
     Indication: RESTLESS LEGS SYNDROME
     Dosage: 1 MG PATCH
     Route: 062

REACTIONS (3)
  - Blister [Unknown]
  - Application site reaction [Not Recovered/Not Resolved]
  - Emotional distress [Unknown]
